FAERS Safety Report 5964532-7 (Version None)
Quarter: 2008Q4

REPORT INFORMATION
  Report Type: 
  Country: None (occurrence: None)
  Receive Date: 20081122
  Receipt Date: 20081122
  Transmission Date: 20090506
  Serious: No
  Sender: FDA-Public Use
  Company Number: None

PATIENT
  Sex: Female
  Weight: 72.5755 kg

DRUGS (4)
  1. DIGITEK [Suspect]
     Indication: CARDIAC DISORDER
     Dosage: RITE AID
  2. PROMETHAZINE [Concomitant]
  3. PHILLIPS OF MAGNESIA [Concomitant]
  4. ENSURE HIGH PROTEIN SHAKES [Concomitant]

REACTIONS (6)
  - ABDOMINAL PAIN [None]
  - DRUG INEFFECTIVE [None]
  - MENTAL DISORDER [None]
  - NAUSEA [None]
  - PANIC ATTACK [None]
  - VOMITING [None]
